FAERS Safety Report 7704741-X (Version None)
Quarter: 2011Q3

REPORT INFORMATION
  Report Type: 
  Country: None (occurrence: None)
  Receive Date: 20110823
  Receipt Date: 20110811
  Transmission Date: 20111222
  Serious: Yes (Other)
  Sender: FDA-Public Use
  Company Number: PHHY2011DE73569

PATIENT
  Sex: Female

DRUGS (2)
  1. VOLTAREN [Suspect]
     Dosage: UNK UKN, UNK
     Route: 030
  2. DEXAMETHASONE [Suspect]
     Dosage: UNK UKN, UNK
     Route: 030

REACTIONS (2)
  - HAEMORRHAGE [None]
  - THROMBOCYTOPENIA [None]
